FAERS Safety Report 10431150 (Version 1)
Quarter: 2014Q3

REPORT INFORMATION
  Report Type: Spontaneous
  Country: CA (occurrence: None)
  Receive Date: 20140902
  Receipt Date: 20140902
  Transmission Date: 20150326
  Serious: Yes (Other)
  Sender: FDA-Public Use
  Company Number: 2515444-2014-00007

PATIENT

DRUGS (1)
  1. BANANA BOAT ULTRAMIST SPORT PERFORMANCE SPF 50 [Suspect]
     Active Substance: AVOBENZONE\HOMOSALATE\OCTINOXATE\OCTISALATE\OCTOCRYLENE\OXYBENZONE
     Indication: PROPHYLAXIS AGAINST SOLAR RADIATION
     Dosage: NO DOSAGE LIMIT
     Route: 061
     Dates: start: 20140802

REACTIONS (2)
  - Burns first degree [None]
  - Burns second degree [None]

NARRATIVE: CASE EVENT DATE: 20140802
